FAERS Safety Report 4717750-X (Version None)
Quarter: 2005Q3

REPORT INFORMATION
  Report Type: 
  Country: None (occurrence: None)
  Receive Date: 20050715
  Receipt Date: 20050610
  Transmission Date: 20060218
  Serious: Yes (Hospitalization)
  Sender: FDA-Public Use
  Company Number: 2005-01314

PATIENT
  Age: 58 Year
  Sex: Female
  Weight: 97.2 kg

DRUGS (15)
  1. INTEGRILIN [Suspect]
     Indication: CORONARY ANGIOPLASTY
     Dosage: SEE IMAGE
     Route: 042
     Dates: start: 20050208, end: 20050208
  2. INTEGRILIN [Suspect]
     Indication: CORONARY ANGIOPLASTY
     Dosage: SEE IMAGE
     Route: 042
     Dates: start: 20050208, end: 20050209
  3. HEPARIN [Suspect]
     Dosage: SEE IMAGE
     Route: 042
     Dates: start: 20050207, end: 20050207
  4. HEPARIN [Suspect]
     Dosage: SEE IMAGE
     Route: 042
     Dates: start: 20050207, end: 20050208
  5. TOPROL-XL [Concomitant]
  6. NORVASC [Concomitant]
  7. ASPIRIN [Concomitant]
  8. LIPITOR [Concomitant]
  9. CLONIDINE [Concomitant]
  10. PLAVIX [Concomitant]
  11. LANTUS [Concomitant]
  12. NOVOLOG [Concomitant]
  13. IMDUR [Concomitant]
  14. LISINOPRIL [Concomitant]
  15. NTG (GLYCERYL TRINITRATE) [Concomitant]

REACTIONS (1)
  - CATHETER SITE HAEMATOMA [None]
